FAERS Safety Report 5943459-0 (Version None)
Quarter: 2008Q4

REPORT INFORMATION
  Report Type: 
  Country: None (occurrence: None)
  Receive Date: 20081105
  Receipt Date: 20081105
  Transmission Date: 20090506
  Serious: Yes (Life-Threatening, Hospitalization)
  Sender: FDA-Public Use
  Company Number: None

PATIENT
  Age: 66 Year
  Sex: Male
  Weight: 86.1834 kg

DRUGS (2)
  1. ZYVOX [Suspect]
     Indication: LUNG INFECTION
     Dosage: 600MG OVER TWO HOURS EVERY 12 HOURS IV DRIP
     Route: 041
     Dates: start: 20081027, end: 20081028
  2. ZYVOX [Suspect]
     Dates: start: 20081029, end: 20081029

REACTIONS (4)
  - GENERAL PHYSICAL HEALTH DETERIORATION [None]
  - HEART RATE INCREASED [None]
  - LOSS OF CONSCIOUSNESS [None]
  - MOVEMENT DISORDER [None]
